FAERS Safety Report 23751514 (Version 1)
Quarter: 2024Q2

REPORT INFORMATION
  Report Type: Spontaneous
  Country: SI (occurrence: SI)
  Receive Date: 20240417
  Receipt Date: 20240417
  Transmission Date: 20240715
  Serious: Yes (Life-Threatening, Hospitalization, Other)
  Sender: FDA-Public Use
  Company Number: SI-SANDOZ-SDZ2024SI038419

PATIENT
  Age: 60 Year

DRUGS (16)
  1. ARIPIPRAZOLE [Suspect]
     Active Substance: ARIPIPRAZOLE
     Dosage: 10 MG, QD
     Route: 065
  2. ARIPIPRAZOLE [Suspect]
     Active Substance: ARIPIPRAZOLE
     Indication: Psychotic symptom
     Dosage: 5 MG, QD
     Route: 065
  3. BIPERIDEN [Suspect]
     Active Substance: BIPERIDEN
     Indication: Bradykinesia
     Dosage: 4 MG, QD
     Route: 065
     Dates: start: 202210
  4. BIPERIDEN [Suspect]
     Active Substance: BIPERIDEN
     Indication: Hypomania
     Dosage: 6 MG, QD
     Route: 065
     Dates: start: 202211
  5. BIPERIDEN [Suspect]
     Active Substance: BIPERIDEN
     Indication: Muscle rigidity
  6. BREXPIPRAZOLE [Suspect]
     Active Substance: BREXPIPRAZOLE
     Indication: Psychotic symptom
     Dosage: 1 MG, QD
     Route: 065
  7. FLUPHENAZINE [Suspect]
     Active Substance: FLUPHENAZINE
     Indication: Psychotic symptom
     Dosage: 10 MG, DIVIDED INTO TWO DOSES
     Route: 065
  8. LORAZEPAM [Suspect]
     Active Substance: LORAZEPAM
     Indication: Akathisia
     Dosage: 1 MG, TID
     Route: 065
  9. LORAZEPAM [Suspect]
     Active Substance: LORAZEPAM
     Dosage: 2 MG
     Route: 065
  10. OLANZAPINE [Suspect]
     Active Substance: OLANZAPINE
     Dosage: 20 MG, QD, TITRATION
     Route: 065
  11. OLANZAPINE [Suspect]
     Active Substance: OLANZAPINE
     Indication: Psychotic symptom
     Dosage: 5 MG, QD
     Route: 065
  12. RISPERIDONE [Suspect]
     Active Substance: RISPERIDONE
     Indication: Psychotic symptom
     Dosage: 1 MG, QD
     Route: 065
     Dates: start: 202210
  13. RISPERIDONE [Suspect]
     Active Substance: RISPERIDONE
     Dosage: 2 MG, QD
     Route: 065
  14. RISPERIDONE [Suspect]
     Active Substance: RISPERIDONE
     Dosage: 2 MG, QD, DIVIDED INTO TWO DOSES
     Route: 065
  15. RISPERIDONE [Suspect]
     Active Substance: RISPERIDONE
     Dosage: 6 MG, QD
     Route: 065
  16. RISPERIDONE [Suspect]
     Active Substance: RISPERIDONE
     Dosage: 9 MG, QD,DIVIDED INTO TWO DOSES
     Route: 065

REACTIONS (3)
  - Extrapyramidal disorder [Unknown]
  - Neuroleptic malignant syndrome [Unknown]
  - Drug ineffective [Unknown]
